FAERS Safety Report 7324830-1 (Version None)
Quarter: 2011Q1

REPORT INFORMATION
  Report Type: 
  Country: None (occurrence: None)
  Receive Date: 20110301
  Receipt Date: 20110217
  Transmission Date: 20110831
  Serious: Yes (Disabling)
  Sender: FDA-Public Use
  Company Number: US-ELI_LILLY_AND_COMPANY-US201012003965

PATIENT
  Sex: Female
  Weight: 88.435 kg

DRUGS (1)
  1. FORTEO [Suspect]
     Indication: OSTEOPOROSIS
     Dosage: 20 UG, DAILY (1/D)
     Route: 065
     Dates: end: 20101107

REACTIONS (5)
  - BONE PAIN [None]
  - MYALGIA [None]
  - GAIT DISTURBANCE [None]
  - ARTHRALGIA [None]
  - POSTURE ABNORMAL [None]
